FAERS Safety Report 22987775 (Version 2)
Quarter: 2024Q2

REPORT INFORMATION
  Report Type: Report from Study
  Country: US (occurrence: US)
  Receive Date: 20230926
  Receipt Date: 20240520
  Transmission Date: 20240716
  Serious: No
  Sender: FDA-Public Use
  Company Number: US-SANOFI-01772625

PATIENT
  Age: 43 Year
  Sex: Female

DRUGS (2)
  1. SARILUMAB [Suspect]
     Active Substance: SARILUMAB
     Indication: Rheumatoid arthritis
     Dosage: 200 MG, QOW
     Dates: start: 202305
  2. ACTEMRA [Concomitant]
     Active Substance: TOCILIZUMAB

REACTIONS (5)
  - Laboratory test abnormal [Unknown]
  - Surgery [Unknown]
  - Injection site discolouration [Unknown]
  - Poor quality product administered [Unknown]
  - Product dose omission in error [Unknown]
